FAERS Safety Report 20487407 (Version 3)
Quarter: 2022Q2

REPORT INFORMATION
  Report Type: Report from Study
  Country: CA (occurrence: CA)
  Receive Date: 20220218
  Receipt Date: 20220511
  Transmission Date: 20220721
  Serious: Yes (Other)
  Sender: FDA-Public Use
  Company Number: CA-NOVARTISPH-NVSC2021CA193660

PATIENT
  Age: 46 Year
  Sex: Male
  Weight: 66 kg

DRUGS (2)
  1. ASCIMINIB [Suspect]
     Active Substance: ASCIMINIB
     Indication: Chronic myeloid leukaemia
     Dosage: UNK, BID
     Route: 065
     Dates: end: 20210906
  2. ASCIMINIB [Suspect]
     Active Substance: ASCIMINIB
     Dosage: 40 MG, BID
     Route: 048
     Dates: start: 20210520, end: 20210907

REACTIONS (7)
  - Cytopenia [Unknown]
  - Thrombocytopenia [Not Recovered/Not Resolved]
  - Chronic myeloid leukaemia [Unknown]
  - Malignant neoplasm progression [Unknown]
  - Neutropenia [Recovered/Resolved]
  - Illness [Unknown]
  - Anaemia [Recovered/Resolved]

NARRATIVE: CASE EVENT DATE: 20210611
